FAERS Safety Report 24689610 (Version 1)
Quarter: 2024Q4

REPORT INFORMATION
  Report Type: Report from Study
  Country: CA (occurrence: CA)
  Receive Date: 20241203
  Receipt Date: 20241203
  Transmission Date: 20250115
  Serious: Yes (Other)
  Sender: SANDOZ
  Company Number: CA-SANDOZ-SDZ2023CA039708

PATIENT
  Sex: Male

DRUGS (1)
  1. HYRIMOZ [Suspect]
     Active Substance: ADALIMUMAB-ADAZ
     Indication: Psoriatic arthropathy
     Dosage: 40 MG, Q2W(EVERY TWO WEEKS)
     Route: 058
     Dates: start: 20230620

REACTIONS (3)
  - Ankylosing spondylitis [Unknown]
  - General physical health deterioration [Unknown]
  - Back pain [Unknown]
